FAERS Safety Report 11635859 (Version 2)
Quarter: 2015Q4

REPORT INFORMATION
  Report Type: Spontaneous
  Country: GB (occurrence: GB)
  Receive Date: 20151016
  Receipt Date: 20151022
  Transmission Date: 20160304
  Serious: Yes (Death, Hospitalization, Other)
  Sender: FDA-Public Use
  Company Number: GB-AMGEN-GBRSP2015107309

PATIENT
  Age: 57 Year
  Sex: Female

DRUGS (1)
  1. ARANESP [Suspect]
     Active Substance: DARBEPOETIN ALFA
     Indication: PRODUCT USED FOR UNKNOWN INDICATION
     Dosage: 0.5 ML (100 MCG), UNK
     Route: 065

REACTIONS (3)
  - Diarrhoea [Unknown]
  - Death [Fatal]
  - Malaise [Unknown]

NARRATIVE: CASE EVENT DATE: 20151015
